FAERS Safety Report 17530710 (Version 1)
Quarter: 2020Q1

REPORT INFORMATION
  Report Type: Spontaneous
  Country: GB (occurrence: GB)
  Receive Date: 20200312
  Receipt Date: 20200312
  Transmission Date: 20200409
  Serious: Yes (Other)
  Sender: FDA-Public Use
  Company Number: GB-TEVA-2020-GB-1197234

PATIENT
  Age: 33 Year
  Sex: Female

DRUGS (2)
  1. FOLIC ACID. [Suspect]
     Active Substance: FOLIC ACID
     Route: 048
  2. PROPRANOLOL [Concomitant]
     Active Substance: PROPRANOLOL HYDROCHLORIDE
     Route: 048

REACTIONS (2)
  - Nausea [Unknown]
  - Dyspepsia [Unknown]
